FAERS Safety Report 13714029 (Version 2)
Quarter: 2017Q3

REPORT INFORMATION
  Report Type: Report from Study
  Country: None (occurrence: BR)
  Receive Date: 20170704
  Receipt Date: 20170706
  Transmission Date: 20171127
  Serious: Yes (Death, Hospitalization, Other)
  Sender: FDA-Public Use
  Company Number: BR-ABBVIE-17P-020-1914262-00

PATIENT
  Sex: Female
  Weight: 90 kg

DRUGS (4)
  1. ARAVA [Concomitant]
     Active Substance: LEFLUNOMIDE
     Indication: ARTHRITIS
     Route: 048
  2. WARFARIN SODIUM (MAREVAN) [Concomitant]
     Indication: BLOOD DISORDER
     Dosage: 1 TIME PER DAY
     Route: 048
  3. HUMIRA [Suspect]
     Active Substance: ADALIMUMAB
     Indication: RHEUMATOID ARTHRITIS
     Route: 058
     Dates: start: 20120810
  4. LOSARTAN (ARADOIS) [Concomitant]
     Indication: BLOOD PRESSURE ABNORMAL
     Dosage: 2 TIMES PER DAY.
     Route: 048

REACTIONS (9)
  - Bone disorder [Unknown]
  - Device dislocation [Unknown]
  - Postoperative wound infection [Unknown]
  - Pain [Unknown]
  - Pulmonary embolism [Unknown]
  - Procedural pain [Unknown]
  - Spine malformation [Unknown]
  - Sciatica [Unknown]
  - Death [Fatal]
